FAERS Safety Report 4502605-6 (Version None)
Quarter: 2004Q4

REPORT INFORMATION
  Report Type: 
  Country: None (occurrence: None)
  Receive Date: 20041110
  Receipt Date: 20041020
  Transmission Date: 20050328
  Serious: Yes (Death, Hospitalization)
  Sender: FDA-Public Use
  Company Number: F01200403260

PATIENT
  Age: 48 Year
  Sex: Male

DRUGS (8)
  1. (OXALIPLATIN) - SOLUTION - 85 MG/M2 [Suspect]
     Indication: COLORECTAL CANCER METASTATIC
     Dosage: 85 MG/M2 Q3W, INTRAVENOUS NOS
     Route: 042
  2. FLUOROURACIL [Suspect]
     Dosage: 1000 MG/M2 Q3W, INTRAVENOUS NOS
     Route: 042
  3. (LEUCOVORIN) - SOLUTION - 200 MG/M2 [Suspect]
     Dosage: 200 MG/M2 Q3W, INTRAVENOUS NOS
     Route: 042
  4. (BEVACIZUMAB) - SOLUTION - 5 MG/KG [Suspect]
     Dosage: 5 MG/KG Q3W, INTRAVENOUS NOS
     Route: 042
  5. BISOPROLOL FUMARATE [Concomitant]
  6. BEXTRA [Concomitant]
  7. ACETYLCYSTEINE [Concomitant]
  8. NOVALGIN (METAMIZOLE SODIUM) [Concomitant]

REACTIONS (6)
  - ANAEMIA [None]
  - ASTHENIA [None]
  - CARDIOVASCULAR DISORDER [None]
  - PERITONEAL CARCINOMA [None]
  - PERITONITIS [None]
  - PYREXIA [None]
